FAERS Safety Report 13160149 (Version 1)
Quarter: 2017Q1

REPORT INFORMATION
  Report Type: Report from Study
  Country: None (occurrence: CO)
  Receive Date: 20170127
  Receipt Date: 20170127
  Transmission Date: 20170428
  Serious: Yes (Death)
  Sender: FDA-Public Use
  Company Number: CO-ABBVIE-17P-036-1854288-00

PATIENT
  Age: 45 Year
  Sex: Male
  Weight: 70 kg

DRUGS (2)
  1. PREDNISOLONE (NON-ABBVIE) [Concomitant]
     Indication: PRODUCT USED FOR UNKNOWN INDICATION
  2. HUMIRA [Suspect]
     Active Substance: ADALIMUMAB
     Indication: ANKYLOSING SPONDYLITIS
     Route: 058
     Dates: start: 20151019, end: 20160220

REACTIONS (4)
  - Cardio-respiratory arrest [Fatal]
  - Renal cyst [Fatal]
  - Post procedural complication [Fatal]
  - Abdominal adhesions [Fatal]

NARRATIVE: CASE EVENT DATE: 201701
